FAERS Safety Report 4455182-2 (Version None)
Quarter: 2004Q3

REPORT INFORMATION
  Report Type: 
  Country: None (occurrence: None)
  Receive Date: 20040825
  Receipt Date: 20040608
  Transmission Date: 20050211
  Serious: No
  Sender: FDA-Public Use
  Company Number: 207087

PATIENT
  Age: 56 Year
  Sex: Female

DRUGS (1)
  1. RAPTIVA [Suspect]
     Indication: DRUG USE FOR UNKNOWN INDICATION
     Dosage: 100 MG,1/WEEK,SUBCUTANEOUS
     Route: 058
     Dates: start: 20040518

REACTIONS (1)
  - INFLUENZA LIKE ILLNESS [None]
